FAERS Safety Report 5275762-4 (Version None)
Quarter: 2007Q1

REPORT INFORMATION
  Report Type: 
  Country: None (occurrence: None)
  Receive Date: 20061213
  Receipt Date: 20040305
  Transmission Date: 20070707
  Serious: No
  Sender: FDA-Public Use
  Company Number: 2004UW04141

PATIENT
  Age: 82 Year
  Sex: Female
  Weight: 66.6788 kg

DRUGS (10)
  1. SEROQUEL [Suspect]
     Indication: DEMENTIA ALZHEIMER'S TYPE
     Dosage: 50 MG PO
     Route: 048
     Dates: start: 20030801
  2. SEROQUEL [Suspect]
     Indication: HALLUCINATION
     Dosage: 50 MG PO
     Route: 048
     Dates: start: 20030801
  3. SEROQUEL [Suspect]
     Indication: DEMENTIA ALZHEIMER'S TYPE
     Dosage: 300 MG PO
     Route: 048
     Dates: start: 20031001
  4. SEROQUEL [Suspect]
     Indication: HALLUCINATION
     Dosage: 300 MG PO
     Route: 048
     Dates: start: 20031001
  5. REMINYL [Concomitant]
  6. NAMENDA [Concomitant]
  7. MICARDIS [Concomitant]
  8. CARDIZEM [Concomitant]
  9. PREVACID [Concomitant]
  10. FOSAMAX [Concomitant]

REACTIONS (3)
  - DRUG INEFFECTIVE [None]
  - TARDIVE DYSKINESIA [None]
  - TREMOR [None]
